FAERS Safety Report 5948492-0 (Version None)
Quarter: 2008Q4

REPORT INFORMATION
  Report Type: 
  Country: None (occurrence: None)
  Receive Date: 20081111
  Receipt Date: 20081104
  Transmission Date: 20090506
  Serious: Yes (Hospitalization)
  Sender: FDA-Public Use
  Company Number: B0535085A

PATIENT
  Age: 57 Year
  Sex: Male

DRUGS (15)
  1. VALTREX [Suspect]
     Indication: HERPES ZOSTER
     Dosage: 500MG TWICE PER DAY
     Route: 048
     Dates: start: 20080809, end: 20080810
  2. FUCIDINE CAP [Concomitant]
     Indication: HERPES ZOSTER
     Dates: start: 20080809, end: 20080810
  3. CRAVIT [Concomitant]
     Indication: RASH
     Route: 048
     Dates: start: 20080805, end: 20080808
  4. GENTACIN [Concomitant]
     Indication: RASH
     Dates: start: 20080805, end: 20080808
  5. LUDIOMIL [Concomitant]
     Indication: DEPRESSION
     Dosage: 20MG PER DAY
     Route: 048
     Dates: start: 20031012
  6. SELBEX [Concomitant]
     Indication: GASTRITIS
     Dosage: 100MG PER DAY
     Route: 048
     Dates: start: 20031012
  7. MEILAX [Concomitant]
     Indication: DEPRESSION
     Dosage: 1MG PER DAY
     Route: 048
     Dates: start: 20031012
  8. HALCION [Concomitant]
     Indication: INSOMNIA
     Dosage: .5MG PER DAY
     Route: 048
     Dates: start: 20031012
  9. FAMOTIDINE [Concomitant]
     Indication: GASTRITIS
     Dosage: 10MG PER DAY
     Route: 048
     Dates: start: 20031012
  10. PLETAL [Concomitant]
     Indication: FEELING COLD
     Dosage: 100MG PER DAY
     Route: 048
     Dates: start: 20031012
  11. WARFARIN SODIUM [Concomitant]
     Indication: THROMBOSIS PROPHYLAXIS
     Dosage: 1MG PER DAY
     Route: 048
     Dates: start: 20031012
  12. HERBESSER [Concomitant]
     Indication: HYPERTENSION
     Dosage: 120MG PER DAY
     Route: 048
     Dates: start: 20031219
  13. ADALAT CC [Concomitant]
     Indication: HYPERTENSION
     Dosage: 80MG PER DAY
     Route: 048
     Dates: start: 20040409
  14. ADALAT CC [Concomitant]
     Indication: HYPERTENSION
     Dosage: 80MG PER DAY
     Route: 048
     Dates: start: 20040326
  15. MAINTATE [Concomitant]
     Indication: HYPERTENSION
     Dosage: 5MG PER DAY
     Route: 048
     Dates: start: 20080208

REACTIONS (3)
  - AMNESIA [None]
  - DYSARTHRIA [None]
  - MOVEMENT DISORDER [None]
